FAERS Safety Report 9409395 (Version 1)
Quarter: 2013Q3

REPORT INFORMATION
  Report Type: Spontaneous
  Country: US (occurrence: US)
  Receive Date: 20130719
  Receipt Date: 20130719
  Transmission Date: 20140515
  Serious: Yes (Other)
  Sender: FDA-Public Use
  Company Number: US-ELI_LILLY_AND_COMPANY-US201307003095

PATIENT
  Sex: Male

DRUGS (17)
  1. AXIRON [Suspect]
     Indication: BLOOD TESTOSTERONE DECREASED
     Dosage: 60 MG, UNKNOWN
     Route: 061
  2. ADDERALL [Suspect]
     Dosage: 60 MG, UNKNOWN
     Route: 065
  3. INSULIN [Interacting]
     Indication: DIABETES MELLITUS
     Dosage: UNK, UNKNOWN
     Route: 065
  4. EXFORGE [Concomitant]
     Dosage: UNK, UNKNOWN
     Route: 065
  5. BYSTOLIC [Concomitant]
     Dosage: 10 MG, UNKNOWN
     Route: 065
  6. SYNTHROID [Concomitant]
     Dosage: 1.75 UG, UNKNOWN
     Route: 065
  7. CYTOMEL [Concomitant]
     Indication: NEUROPATHY PERIPHERAL
     Dosage: 2.5 UG, UNKNOWN
     Route: 065
  8. BUPRION [Concomitant]
     Dosage: UNK, UNKNOWN
     Route: 065
  9. WELLBUTRIN [Concomitant]
     Dosage: 30 MG, UNKNOWN
     Route: 065
  10. CYMBALTA [Concomitant]
     Dosage: 60 MG, UNKNOWN
     Route: 065
  11. ALPRAZOLAM [Concomitant]
     Dosage: UNK, PRN
     Route: 065
  12. SEROQUEL [Concomitant]
     Dosage: 30 MG, UNKNOWN
     Route: 065
  13. NOVOLOG [Concomitant]
     Dosage: UNK, UNKNOWN
     Route: 065
  14. LEVEMIR [Concomitant]
     Dosage: UNK, UNKNOWN
     Route: 065
  15. INSULIN N [Concomitant]
     Dosage: UNK, UNKNOWN
     Route: 065
  16. ANDROGEL [Concomitant]
     Dosage: UNK, UNKNOWN
     Route: 065
  17. HYDROCORTISONE [Concomitant]
     Indication: ADRENAL DISORDER
     Dosage: UNK, UNKNOWN
     Route: 065

REACTIONS (6)
  - Adrenal insufficiency [Unknown]
  - Tremor [Unknown]
  - Underdose [Unknown]
  - Drug dose omission [Unknown]
  - Drug interaction [Unknown]
  - Blood glucose increased [Unknown]
